FAERS Safety Report 13351572 (Version 1)
Quarter: 2017Q1

REPORT INFORMATION
  Report Type: Report from Study
  Country: US (occurrence: US)
  Receive Date: 20170320
  Receipt Date: 20170320
  Transmission Date: 20170429
  Serious: No
  Sender: FDA-Public Use
  Company Number: US-INCYTE CORPORATION-2017IN001661

PATIENT
  Sex: Male

DRUGS (1)
  1. JAKAFI [Suspect]
     Active Substance: RUXOLITINIB
     Indication: POLYCYTHAEMIA VERA
     Dosage: UNK
     Route: 049

REACTIONS (6)
  - Fatigue [Unknown]
  - Hair growth abnormal [Unknown]
  - Bone pain [Unknown]
  - Nail growth abnormal [Unknown]
  - Asthenia [Unknown]
  - Balance disorder [Unknown]
